FAERS Safety Report 10729664 (Version 1)
Quarter: 2015Q1

REPORT INFORMATION
  Report Type: Spontaneous
  Country: US (occurrence: None)
  Receive Date: 20150121
  Receipt Date: 20150121
  Transmission Date: 20150721
  Serious: Yes (Other)
  Sender: FDA-Public Use
  Company Number: None

PATIENT
  Sex: Female
  Weight: 82 kg

DRUGS (6)
  1. JOHNSONS BABY POWDER [Suspect]
     Active Substance: TALC
     Indication: SKIN DISORDER
     Dosage: BIT, EVERY 3 DAYS
     Route: 061
  2. BLOOD PRESSURE MEDICATION [Concomitant]
     Active Substance: UNSPECIFIED INGREDIENT
  3. JOHNSONS BABY POWDER [Suspect]
     Active Substance: TALC
     Indication: SKIN ODOUR ABNORMAL
     Dosage: BIT, EVERY 3 DAYS
     Route: 061
  4. JOHNSONS BABY POWDER [Suspect]
     Active Substance: TALC
     Indication: SKIN ODOUR ABNORMAL
     Dosage: BIT, EVERY 3 DAYS
     Route: 061
  5. JOHNSONS BABY POWDER [Suspect]
     Active Substance: TALC
     Indication: SKIN DISORDER
     Dosage: BIT, EVERY 3 DAYS
     Route: 061
  6. CHOLESTEROL MEDICATION [Concomitant]
     Active Substance: UNSPECIFIED INGREDIENT

REACTIONS (1)
  - Uterine cancer [None]

NARRATIVE: CASE EVENT DATE: 201207
